FAERS Safety Report 6278388-9 (Version None)
Quarter: 2009Q3

REPORT INFORMATION
  Report Type: 
  Country: None (occurrence: None)
  Receive Date: 20090720
  Receipt Date: 20090720
  Transmission Date: 20100115
  Serious: Yes (Hospitalization)
  Sender: FDA-Public Use
  Company Number: None

PATIENT
  Age: 61 Year
  Sex: Female
  Weight: 78.0187 kg

DRUGS (2)
  1. EPIRUBICIN [Suspect]
     Indication: BREAST CANCER
     Dosage: 90MG/M2 Q3WK IV BOLUS
     Route: 040
     Dates: start: 20090629, end: 20090629
  2. CYCLOPHOSPHAMIDE [Suspect]
     Indication: BREAST CANCER
     Dosage: 600MG/M2 Q3WK IV BOLUS
     Route: 040
     Dates: start: 20090629, end: 20090629

REACTIONS (3)
  - BODY TEMPERATURE INCREASED [None]
  - NEUTROPHIL COUNT DECREASED [None]
  - WHITE BLOOD CELL COUNT DECREASED [None]
